FAERS Safety Report 6977354-5 (Version None)
Quarter: 2010Q3

REPORT INFORMATION
  Report Type: 
  Country: None (occurrence: None)
  Receive Date: 20100910
  Receipt Date: 20100903
  Transmission Date: 20110219
  Serious: Yes (Hospitalization)
  Sender: FDA-Public Use
  Company Number: DE-BAXTER-2009BH011604

PATIENT
  Age: 78 Year
  Sex: Male

DRUGS (11)
  1. CYCLOPHOSPHAMIDE [Suspect]
     Indication: TEMPORAL ARTERITIS
     Route: 048
     Dates: start: 20081101, end: 20090313
  2. PREDNISOLON [Suspect]
     Indication: TEMPORAL ARTERITIS
     Route: 048
     Dates: start: 20081101, end: 20090313
  3. PREDNISOLON [Suspect]
     Route: 048
     Dates: start: 20090313
  4. PANTOPRAZOLE SODIUM [Concomitant]
     Indication: GASTRITIS
     Route: 048
     Dates: start: 20060901
  5. PREGABALIN [Concomitant]
     Indication: DIABETIC NEUROPATHY
     Route: 048
  6. XALATAN [Concomitant]
     Indication: GLAUCOMA
     Route: 057
     Dates: start: 20070101
  7. TIM-OPHTAL [Concomitant]
     Indication: GLAUCOMA
     Route: 057
     Dates: start: 20070101
  8. FALITHROM ^HEXAL^ [Concomitant]
     Indication: ATRIAL FIBRILLATION
     Route: 048
     Dates: start: 20080101
  9. LEVOTHYROXINE SODIUM [Concomitant]
     Indication: GOITRE
     Route: 048
  10. ALLOPURINOL [Concomitant]
     Indication: HYPERURICAEMIA
     Route: 048
  11. MESNA [Concomitant]
     Indication: TEMPORAL ARTERITIS
     Route: 048
     Dates: start: 20081101

REACTIONS (1)
  - RESPIRATORY TRACT INFECTION [None]
